FAERS Safety Report 8609201-X (Version None)
Quarter: 2012Q3

REPORT INFORMATION
  Report Type: 
  Country: None (occurrence: None)
  Receive Date: 20120821
  Receipt Date: 20120717
  Transmission Date: 20120928
  Serious: Yes (Hospitalization, Disabling, Other)
  Sender: FDA-Public Use
  Company Number: US-009507513-1203USA02809

PATIENT

DRUGS (8)
  1. VITAMIN D [Concomitant]
     Indication: BONE DENSITY INCREASED
     Dosage: UNK UNK, BID
     Dates: start: 19970428
  2. ORUVAIL [Concomitant]
     Dosage: 200 MG, QD
     Dates: start: 19970403, end: 19970428
  3. CALCIUM (UNSPECIFIED) [Concomitant]
     Indication: BONE DENSITY INCREASED
     Dosage: UNK UNK, BID
     Dates: start: 19970428
  4. ACTONEL [Suspect]
     Dosage: 35 MG, QW
     Route: 048
  5. FOSAMAX [Suspect]
     Indication: OSTEOPENIA
     Dosage: 70 MG, QW
     Route: 048
     Dates: start: 19970301, end: 20020918
  6. FOSAMAX [Suspect]
     Dosage: 10 MG, QD
     Route: 048
     Dates: start: 19970428, end: 20020918
  7. SERZONE [Concomitant]
     Dosage: 150 MG, BID
  8. FLEXERIL [Concomitant]

REACTIONS (56)
  - APPENDICITIS [None]
  - CORONARY ARTERY DISEASE [None]
  - DENTAL CARIES [None]
  - TYPE 2 DIABETES MELLITUS [None]
  - LUMBAR VERTEBRAL FRACTURE [None]
  - SYNCOPE [None]
  - CERVICOBRACHIAL SYNDROME [None]
  - ROTATOR CUFF SYNDROME [None]
  - SPINAL OSTEOARTHRITIS [None]
  - RECTOCELE REPAIR [None]
  - BLOOD CHOLESTEROL INCREASED [None]
  - ANAEMIA [None]
  - GASTROINTESTINAL MOTILITY DISORDER [None]
  - STRESS URINARY INCONTINENCE [None]
  - TENOSYNOVITIS STENOSANS [None]
  - JOINT INJURY [None]
  - MUSCULAR WEAKNESS [None]
  - CEREBROVASCULAR ACCIDENT [None]
  - SPINAL COMPRESSION FRACTURE [None]
  - PELVIC PAIN [None]
  - WRIST FRACTURE [None]
  - HYPOAESTHESIA [None]
  - SINUSITIS [None]
  - CONJUNCTIVITIS [None]
  - ARTERIOSCLEROSIS [None]
  - BRONCHITIS [None]
  - HYPERTENSION [None]
  - LIGAMENT SPRAIN [None]
  - MENISCUS LESION [None]
  - INJURY [None]
  - RIB DEFORMITY [None]
  - DYSLIPIDAEMIA [None]
  - ARTHRALGIA [None]
  - BLADDER PROLAPSE [None]
  - WEIGHT DECREASED [None]
  - NASOPHARYNGITIS [None]
  - PLEURAL FIBROSIS [None]
  - FEMUR FRACTURE [None]
  - VERTEBROPLASTY [None]
  - CHOLECYSTECTOMY [None]
  - DEFAECATION URGENCY [None]
  - AORTIC DISORDER [None]
  - ACQUIRED DIAPHRAGMATIC EVENTRATION [None]
  - PAIN IN EXTREMITY [None]
  - OSTEOPOROSIS [None]
  - DUODENITIS HAEMORRHAGIC [None]
  - BLOOD PRESSURE INCREASED [None]
  - HYPERGLYCAEMIA [None]
  - PAIN [None]
  - CAROTID ARTERIOSCLEROSIS [None]
  - ULCER [None]
  - DYSPNOEA [None]
  - CLAUSTROPHOBIA [None]
  - FALL [None]
  - MICROANGIOPATHY [None]
  - ASTHENIA [None]
